FAERS Safety Report 7350530-8 (Version None)
Quarter: 2011Q1

REPORT INFORMATION
  Report Type: 
  Country: None (occurrence: None)
  Receive Date: 20110222
  Receipt Date: 20101126
  Transmission Date: 20110831
  Serious: No
  Sender: FDA-Public Use
  Company Number: 022933

PATIENT
  Sex: Female
  Weight: 61.2 kg

DRUGS (7)
  1. VITAMIN D [Concomitant]
  2. LORAZEPAM [Suspect]
     Indication: ANXIETY
     Dosage: (0.5 MG QD ORAL)
     Route: 048
     Dates: start: 20100101
  3. CALCIUM [Concomitant]
  4. MULTI-VITAMINS [Concomitant]
  5. LACOSAMIDE [Suspect]
     Indication: CONVULSION
     Dosage: (50 MG BID ORAL)
     Route: 048
     Dates: end: 20101120
  6. CLONAZEPAM [Suspect]
     Indication: CONVULSION
     Dosage: (0.5 MG QD ORAL)
     Route: 048
     Dates: start: 20100101
  7. TYLENOL (CAPLET) [Concomitant]

REACTIONS (5)
  - DIPLOPIA [None]
  - GAIT DISTURBANCE [None]
  - DIZZINESS [None]
  - VISION BLURRED [None]
  - PHOTOPHOBIA [None]
